FAERS Safety Report 6845266-3 (Version None)
Quarter: 2010Q3

REPORT INFORMATION
  Report Type: 
  Country: None (occurrence: None)
  Receive Date: 20100715
  Receipt Date: 20070815
  Transmission Date: 20110219
  Serious: Yes (Other)
  Sender: FDA-Public Use
  Company Number: US-PFIZER INC-2007068636

PATIENT
  Sex: Female
  Weight: 74.545 kg

DRUGS (4)
  1. CHANTIX [Suspect]
     Indication: SMOKING CESSATION THERAPY
     Dates: start: 20070801
  2. ZOLOFT [Suspect]
     Indication: PREMENSTRUAL SYNDROME
     Dates: start: 20070801
  3. ANTIHISTAMINES [Concomitant]
  4. CLONAZEPAM [Concomitant]

REACTIONS (3)
  - ERYTHEMA [None]
  - PRURITUS [None]
  - RASH [None]
